FAERS Safety Report 4338127-5 (Version None)
Quarter: 2004Q2

REPORT INFORMATION
  Report Type: 
  Country: None (occurrence: None)
  Receive Date: 20040412
  Receipt Date: 20040412
  Transmission Date: 20050107
  Serious: Yes (Hospitalization)
  Sender: FDA-Public Use
  Company Number: None

PATIENT
  Age: 76 Year
  Sex: Female
  Weight: 61.9 kg

DRUGS (7)
  1. LEVOFLOXACIN [Suspect]
     Indication: BRONCHITIS
     Dosage: 500MG ONCE DAILY ORAL
     Route: 048
     Dates: start: 20030323, end: 20040324
  2. LEVOFLOXACIN [Suspect]
     Indication: PYREXIA
     Dosage: 500MG ONCE DAILY ORAL
     Route: 048
     Dates: start: 20030323, end: 20040324
  3. ALLOPURINOL [Concomitant]
  4. METOPROLOL [Concomitant]
  5. AMLODIPINE [Concomitant]
  6. HYZAAR [Concomitant]
  7. ZETIA [Concomitant]

REACTIONS (3)
  - BODY TEMPERATURE INCREASED [None]
  - RASH MACULO-PAPULAR [None]
  - STEVENS-JOHNSON SYNDROME [None]
